FAERS Safety Report 5168118-6 (Version None)
Quarter: 2006Q4

REPORT INFORMATION
  Report Type: 
  Country: None (occurrence: None)
  Receive Date: 20061130
  Receipt Date: 20061024
  Transmission Date: 20070319
  Serious: Yes (Death)
  Sender: FDA-Public Use
  Company Number: AND_AAPCC_2006_0635

PATIENT
  Age: 19 Year

DRUGS (3)
  1. ACETAMINOPHEN AND HYDROCODONE BITARTRATE [Suspect]
     Dosage: DF 047
  2. OXYCODONE HCL [Suspect]
     Dosage: DF 047
  3. MEPERIDINE HCL [Suspect]
     Dosage: DF 047

REACTIONS (3)
  - CARDIAC ARREST [None]
  - MEDICATION ERROR [None]
  - RESPIRATORY ARREST [None]
